FAERS Safety Report 20369613 (Version 1)
Quarter: 2022Q1

REPORT INFORMATION
  Report Type: Report from Study
  Country: US (occurrence: US)
  Receive Date: 20220124
  Receipt Date: 20220124
  Transmission Date: 20220423
  Serious: Yes (Other)
  Sender: FDA-Public Use
  Company Number: US-NOVARTISPH-NVSC2022US011655

PATIENT
  Sex: Male

DRUGS (2)
  1. ENTRESTO [Suspect]
     Active Substance: SACUBITRIL\VALSARTAN
     Indication: Cardiac infection
     Dosage: 97 MG, QD
     Route: 048
     Dates: start: 201907
  2. ENTRESTO [Suspect]
     Active Substance: SACUBITRIL\VALSARTAN
     Dosage: 103 MG, QD
     Route: 048

REACTIONS (5)
  - Necrosis [Unknown]
  - Brain injury [Unknown]
  - Memory impairment [Unknown]
  - Heart rate abnormal [Unknown]
  - Product use in unapproved indication [Unknown]
